FAERS Safety Report 8922751 (Version 2)
Quarter: 2013Q1

REPORT INFORMATION
  Report Type: Spontaneous
  Country: US (occurrence: None)
  Receive Date: 20121115
  Receipt Date: 20121231
  Transmission Date: 20140127
  Serious: Yes (Other)
  Sender: FDA-Public Use
  Company Number: JPI-P-026181

PATIENT
  Age: 68 Year
  Sex: Male
  Weight: 101.61 kg

DRUGS (1)
  1. XYREM [Suspect]
     Indication: NARCOLEPSY
     Dosage: 4.5 GM (2.25 GM, 2 IN 1 D), ORAL
     Dates: start: 20111111

REACTIONS (16)
  - Musculoskeletal pain [None]
  - Insomnia [None]
  - Pain [None]
  - Dysarthria [None]
  - Nasopharyngitis [None]
  - Cough [None]
  - Nasal congestion [None]
  - Oropharyngeal pain [None]
  - Confusional state [None]
  - Memory impairment [None]
  - Myalgia [None]
  - Hyperhidrosis [None]
  - Fatigue [None]
  - Musculoskeletal pain [None]
  - Insomnia [None]
  - Incorrect dose administered [None]
